FAERS Safety Report 5639949-0 (Version None)
Quarter: 2008Q1

REPORT INFORMATION
  Report Type: 
  Country: None (occurrence: None)
  Receive Date: 20080227
  Receipt Date: 20080219
  Transmission Date: 20080703
  Serious: Yes (Hospitalization)
  Sender: FDA-Public Use
  Company Number: US-JNJFOC-20080203737

PATIENT
  Sex: Female
  Weight: 61.24 kg

DRUGS (5)
  1. DURAGESIC-100 [Suspect]
     Indication: PAIN
     Route: 062
  2. PSYCHOTIC MEDICATION [Concomitant]
     Indication: BIPOLAR DISORDER
     Route: 065
  3. ANXIETY MEDICATION [Concomitant]
     Indication: ANXIETY
     Route: 065
  4. COMPULSIVE DISORDER MEDICATION [Concomitant]
     Indication: OBSESSIVE-COMPULSIVE DISORDER
     Route: 065
  5. POST TRAUMATIC STRESS MEDICATION [Concomitant]
     Indication: POST-TRAUMATIC STRESS DISORDER
     Route: 065

REACTIONS (1)
  - SUICIDAL BEHAVIOUR [None]
